FAERS Safety Report 19668801 (Version 1)
Quarter: 2021Q3

REPORT INFORMATION
  Report Type: Report from Study
  Country: AU (occurrence: AU)
  Receive Date: 20210806
  Receipt Date: 20210806
  Transmission Date: 20211014
  Serious: Yes (Hospitalization, Other)
  Sender: FDA-Public Use
  Company Number: AU-GILEAD-2021-0542930

PATIENT
  Sex: Male

DRUGS (1)
  1. TENOFOVIR ALAFENAMIDE [Suspect]
     Active Substance: TENOFOVIR ALAFENAMIDE
     Indication: HEPATITIS B
     Dosage: UNK
     Route: 063
     Dates: start: 20191030, end: 20200325

REACTIONS (5)
  - Foetal exposure during pregnancy [Recovered/Resolved]
  - Weight decreased [Recovering/Resolving]
  - Ankyloglossia congenital [Recovering/Resolving]
  - Jaundice [Recovered/Resolved]
  - Exposure via breast milk [Unknown]

NARRATIVE: CASE EVENT DATE: 20200103
